FAERS Safety Report 9661202 (Version 2)
Quarter: 2013Q4

REPORT INFORMATION
  Report Type: Spontaneous
  Country: US (occurrence: None)
  Receive Date: 20131101
  Receipt Date: 20131101
  Transmission Date: 20140711
  Serious: Yes (Death)
  Sender: FDA-Public Use
  Company Number: AXC-2013-000571

PATIENT
  Age: 41 Year
  Sex: Female

DRUGS (1)
  1. ZENPEP [Suspect]
     Indication: PRODUCT USED FOR UNKNOWN INDICATION
     Dosage: UNK , UNKNOWN

REACTIONS (1)
  - Small intestine carcinoma [None]
